FAERS Safety Report 24618360 (Version 1)
Quarter: 2024Q4

REPORT INFORMATION
  Report Type: Spontaneous
  Country: US (occurrence: None)
  Receive Date: 20241113
  Receipt Date: 20241113
  Transmission Date: 20250114
  Serious: No
  Sender: Public
  Company Number: None

PATIENT
  Age: 58 Year
  Sex: Male

DRUGS (1)
  1. EMPAGLIFLOZIN [Suspect]
     Active Substance: EMPAGLIFLOZIN
     Indication: Diabetes mellitus
     Dates: end: 20240819

REACTIONS (4)
  - Euglycaemic diabetic ketoacidosis [None]
  - Abdominal pain [None]
  - Confusional state [None]
  - Treatment noncompliance [None]

NARRATIVE: CASE EVENT DATE: 20240819
